FAERS Safety Report 6747693-1 (Version None)
Quarter: 2010Q2

REPORT INFORMATION
  Report Type: 
  Country: None (occurrence: None)
  Receive Date: 20100528
  Receipt Date: 20100519
  Transmission Date: 20101027
  Serious: Yes (Death, Life-Threatening)
  Sender: FDA-Public Use
  Company Number: PHHO2008DE00652

PATIENT
  Sex: Male
  Weight: 75 kg

DRUGS (3)
  1. SIMULECT [Suspect]
     Indication: LIVER TRANSPLANT
     Dosage: 20 MG, DAY 0
     Route: 042
     Dates: start: 20071216, end: 20071216
  2. SIMULECT [Suspect]
     Dosage: 20 MG, DAY 4
     Route: 042
     Dates: start: 20071220, end: 20071220
  3. NO TREATMENT RECEIVED NOMED [Suspect]
     Dosage: NO TREATMENT

REACTIONS (5)
  - ENTEROCOCCAL SEPSIS [None]
  - FUNGAL PERITONITIS [None]
  - PANCREATITIS HAEMORRHAGIC [None]
  - PANCREATITIS NECROTISING [None]
  - RENAL FAILURE ACUTE [None]
